FAERS Safety Report 4613264-6 (Version None)
Quarter: 2005Q1

REPORT INFORMATION
  Report Type: 
  Country: None (occurrence: None)
  Receive Date: 20050315
  Receipt Date: 20050228
  Transmission Date: 20050727
  Serious: No
  Sender: FDA-Public Use
  Company Number: A01200501224

PATIENT
  Age: 30 Year

DRUGS (3)
  1. STILNOCT - (ZOLPIDEM TARTRATE) [Suspect]
     Dosage: HIGH DOSES
  2. FLUOXETINE [Concomitant]
  3. CITALOPRAM HYDROBROMIDE [Concomitant]

REACTIONS (1)
  - AUTOMATISM [None]
